FAERS Safety Report 7221693-X (Version None)
Quarter: 2011Q1

REPORT INFORMATION
  Report Type: 
  Country: None (occurrence: None)
  Receive Date: 20110112
  Receipt Date: 20110104
  Transmission Date: 20110831
  Serious: Yes (Death, Hospitalization)
  Sender: FDA-Public Use
  Company Number: CH-ROCHE-751566

PATIENT
  Age: 54 Year
  Sex: Female

DRUGS (4)
  1. PEGASYS [Suspect]
     Indication: HEPATITIS C
     Dosage: FORM: VIALS.
     Route: 058
     Dates: start: 20100801, end: 20101001
  2. TRIATEC [Concomitant]
     Indication: HYPERTENSION
     Dates: end: 20101107
  3. METOPROLOL SUCCINATE [Concomitant]
     Indication: HYPERTENSION
     Dosage: DRUG: BELOC ZOK.
     Dates: end: 20101107
  4. COPEGUS [Concomitant]
     Indication: HEPATITIS C
     Route: 048
     Dates: start: 20100801, end: 20101001

REACTIONS (3)
  - CEREBRAL HAEMORRHAGE [None]
  - PANCYTOPENIA [None]
  - HISTIOCYTOSIS HAEMATOPHAGIC [None]
